FAERS Safety Report 22788221 (Version 6)
Quarter: 2025Q3

REPORT INFORMATION
  Report Type: Spontaneous
  Country: US (occurrence: US)
  Receive Date: 20230804
  Receipt Date: 20250820
  Transmission Date: 20251020
  Serious: Yes (Hospitalization, Other)
  Sender: ELI LILLY AND COMPANY
  Company Number: US-ELI_LILLY_AND_COMPANY-US202308002265

PATIENT
  Age: 59 Year
  Sex: Female

DRUGS (18)
  1. TRULICITY [Suspect]
     Active Substance: DULAGLUTIDE
     Indication: Swelling
     Route: 065
     Dates: start: 2012, end: 2015
  2. TRULICITY [Suspect]
     Active Substance: DULAGLUTIDE
     Indication: Swelling
     Route: 065
     Dates: start: 2012, end: 2015
  3. TRULICITY [Suspect]
     Active Substance: DULAGLUTIDE
     Indication: Swelling
     Route: 065
     Dates: start: 2012, end: 2015
  4. TRULICITY [Suspect]
     Active Substance: DULAGLUTIDE
     Indication: Swelling
     Route: 065
     Dates: start: 2012, end: 2015
  5. TRULICITY [Suspect]
     Active Substance: DULAGLUTIDE
     Indication: Weight control
     Route: 058
     Dates: start: 2018
  6. TRULICITY [Suspect]
     Active Substance: DULAGLUTIDE
     Indication: Weight control
     Route: 058
     Dates: start: 2018
  7. TRULICITY [Suspect]
     Active Substance: DULAGLUTIDE
     Indication: Weight control
     Route: 058
     Dates: start: 2018
  8. TRULICITY [Suspect]
     Active Substance: DULAGLUTIDE
     Indication: Weight control
     Route: 058
     Dates: start: 2018
  9. TRULICITY [Suspect]
     Active Substance: DULAGLUTIDE
     Indication: Weight control
     Route: 058
     Dates: start: 2018
  10. TRULICITY [Suspect]
     Active Substance: DULAGLUTIDE
     Indication: Inflammation
     Route: 065
     Dates: start: 2021
  11. TRULICITY [Suspect]
     Active Substance: DULAGLUTIDE
     Indication: Inflammation
     Route: 065
     Dates: start: 2021
  12. TRULICITY [Suspect]
     Active Substance: DULAGLUTIDE
     Indication: Inflammation
     Route: 065
     Dates: start: 2021
  13. TRULICITY [Suspect]
     Active Substance: DULAGLUTIDE
     Indication: Inflammation
     Route: 065
     Dates: start: 2021
  14. TRULICITY [Suspect]
     Active Substance: DULAGLUTIDE
     Route: 058
     Dates: start: 2022
  15. TRULICITY [Suspect]
     Active Substance: DULAGLUTIDE
     Route: 058
     Dates: start: 2022
  16. TRULICITY [Suspect]
     Active Substance: DULAGLUTIDE
     Route: 058
     Dates: start: 2022
  17. TRULICITY [Suspect]
     Active Substance: DULAGLUTIDE
     Route: 058
     Dates: start: 2022
  18. TRULICITY [Suspect]
     Active Substance: DULAGLUTIDE
     Route: 058
     Dates: start: 2022

REACTIONS (17)
  - Eye haemorrhage [Recovering/Resolving]
  - Splenomegaly [Unknown]
  - Chronic myeloid leukaemia [Unknown]
  - Injection site haemorrhage [Unknown]
  - Accidental underdose [Unknown]
  - Inappropriate schedule of product administration [Unknown]
  - Off label use [Unknown]
  - Weight increased [Unknown]
  - Intentional dose omission [Unknown]
  - Tremor [Unknown]
  - Weight decreased [Unknown]
  - Bronchitis [Unknown]
  - Influenza [Unknown]
  - Blood glucose increased [Unknown]
  - Incorrect dose administered [Unknown]
  - Decreased appetite [Unknown]
  - Laboratory test abnormal [Unknown]

NARRATIVE: CASE EVENT DATE: 20180101
